FAERS Safety Report 4777984-5 (Version None)
Quarter: 2005Q3

REPORT INFORMATION
  Report Type: 
  Country: None (occurrence: None)
  Receive Date: 20050922
  Receipt Date: 20050919
  Transmission Date: 20060218
  Serious: Yes (Hospitalization, Other)
  Sender: FDA-Public Use
  Company Number: 005667

PATIENT

DRUGS (2)
  1. REVIA [Suspect]
     Indication: DRUG DETOXIFICATION
     Dosage: 50 MG
  2. ANAESTHETICS, GENERAL [Suspect]
     Indication: DRUG DETOXIFICATION

REACTIONS (4)
  - DRUG DEPENDENCE [None]
  - LARYNGEAL OEDEMA [None]
  - PNEUMONIA ASPIRATION [None]
  - PULMONARY OEDEMA [None]
